FAERS Safety Report 24206156 (Version 1)
Quarter: 2024Q3

REPORT INFORMATION
  Report Type: Spontaneous
  Country: US (occurrence: US)
  Receive Date: 20240813
  Receipt Date: 20240813
  Transmission Date: 20241017
  Serious: No
  Sender: PFIZER
  Company Number: US-PFIZER INC-202400234057

PATIENT
  Age: 52 Year
  Sex: Female

DRUGS (4)
  1. TUKYSA [Suspect]
     Active Substance: TUCATINIB
     Indication: Hormone receptor positive breast cancer
     Dosage: TAKE TWO 50 MG TABS WITH ONE 150 MG TAB TWICE A DAY
     Route: 048
  2. HERCEPTIN [Suspect]
     Active Substance: TRASTUZUMAB
     Dosage: UNK
  3. XELODA [Suspect]
     Active Substance: CAPECITABINE
     Dosage: 500 MG, 2X/DAY
  4. XELODA [Suspect]
     Active Substance: CAPECITABINE
     Dosage: 1000 MG, DAILY
     Dates: start: 202201

REACTIONS (4)
  - Asthenia [Unknown]
  - Depressed mood [Unknown]
  - Diarrhoea [Unknown]
  - Rash [Unknown]

NARRATIVE: CASE EVENT DATE: 20210201
